FAERS Safety Report 18419050 (Version 1)
Quarter: 2020Q4

REPORT INFORMATION
  Report Type: Spontaneous
  Country: US (occurrence: US)
  Receive Date: 20201023
  Receipt Date: 20201023
  Transmission Date: 20210114
  Serious: No
  Sender: FDA-Public Use
  Company Number: None

PATIENT
  Age: 66 Year
  Sex: Female

DRUGS (1)
  1. BOTOX [Suspect]
     Active Substance: ONABOTULINUMTOXINA
     Dosage: FREQUENCY: OTHER
     Route: 030
     Dates: start: 202006, end: 202006

REACTIONS (2)
  - Drug ineffective [None]
  - Intracranial pressure increased [None]

NARRATIVE: CASE EVENT DATE: 20200610
